FAERS Safety Report 8052872-X (Version None)
Quarter: 2012Q1

REPORT INFORMATION
  Report Type: 
  Country: None (occurrence: None)
  Receive Date: 20120103
  Receipt Date: 20111216
  Transmission Date: 20120608
  Serious: Yes (Other)
  Sender: FDA-Public Use
  Company Number: 2011030574

PATIENT
  Age: 50 Year
  Sex: Female

DRUGS (5)
  1. PRIVIGEN [Suspect]
     Indication: CHRONIC INFLAMMATORY DEMYELINATING POLYRADICULONEUROPATHY
  2. IMMUNE GLOBULIN INTRAVENOUS (HUMAN) [Suspect]
     Indication: CHRONIC INFLAMMATORY DEMYELINATING POLYRADICULONEUROPATHY
     Dosage: 1 DOSE
  3. PRIVIGEN [Suspect]
  4. PRIVIGEN [Suspect]
  5. PRIVIGEN [Suspect]

REACTIONS (2)
  - OFF LABEL USE [None]
  - HAEMOLYSIS [None]
